FAERS Safety Report 10027268 (Version 1)
Quarter: 2014Q1

REPORT INFORMATION
  Report Type: Spontaneous
  Country: GB (occurrence: GB)
  Receive Date: 20140321
  Receipt Date: 20140321
  Transmission Date: 20141002
  Serious: Yes (Other)
  Sender: FDA-Public Use
  Company Number: GB-JNJFOC-20140307958

PATIENT
  Age: 25 Year
  Sex: Female
  Weight: 55.4 kg

DRUGS (3)
  1. XARELTO [Suspect]
     Indication: PRODUCT USED FOR UNKNOWN INDICATION
     Route: 048
     Dates: start: 20140217
  2. MIRTAZAPINE [Concomitant]
     Route: 065
     Dates: start: 20140217
  3. PROMETHAZINE HYDROCHLORIDE [Concomitant]
     Route: 065
     Dates: start: 20140224

REACTIONS (1)
  - Oedema peripheral [Recovering/Resolving]
